FAERS Safety Report 20852401 (Version 1)
Quarter: 2022Q2

REPORT INFORMATION
  Report Type: Spontaneous
  Country: BR (occurrence: BR)
  Receive Date: 20220520
  Receipt Date: 20220520
  Transmission Date: 20220721
  Serious: Yes (Other)
  Sender: FDA-Public Use
  Company Number: Medical Information-BRAZIL-01119021 - a5o1Y0000009FptQAE

PATIENT
  Age: 62 Year
  Sex: Male

DRUGS (1)
  1. LENALIDOMIDE [Suspect]
     Active Substance: LENALIDOMIDE
     Indication: Plasma cell myeloma
     Dosage: 25 MG;     FREQ : 21 DAYS / PAUSE 7{

REACTIONS (2)
  - Product dispensing error [Unknown]
  - Leukaemia [Unknown]
